FAERS Safety Report 6404205-X (Version None)
Quarter: 2009Q4

REPORT INFORMATION
  Report Type: 
  Country: None (occurrence: None)
  Receive Date: 20091016
  Receipt Date: 20091007
  Transmission Date: 20100525
  Serious: Yes (Hospitalization)
  Sender: FDA-Public Use
  Company Number: FR-PFIZER INC-2009279318

PATIENT
  Age: 54 Year

DRUGS (10)
  1. TAHOR [Suspect]
     Indication: HYPERCHOLESTEROLAEMIA
     Dosage: 20 MG, 1X/DAY
     Route: 048
  2. COUMADIN [Interacting]
     Indication: ANTIPHOSPHOLIPID SYNDROME
     Dosage: 10 MG, 1X/DAY
     Route: 048
  3. DEROXAT [Interacting]
     Indication: DEPRESSION
     Dosage: 20 MG, 1X/DAY
  4. ACTONEL [Concomitant]
     Indication: OSTEOPOROSIS
     Dosage: 35 MG, WEEKLY
  5. PLAQUENIL [Concomitant]
     Indication: CUTANEOUS LUPUS ERYTHEMATOSUS
     Dosage: 1 DF, 3X/DAY
     Route: 048
  6. IMOVANE [Concomitant]
     Indication: INSOMNIA
     Dosage: UNK
     Route: 048
  7. TOPALGIC [Concomitant]
     Indication: PAIN
     Dosage: UNK
     Route: 048
  8. MYOLASTAN [Concomitant]
     Indication: MUSCLE SPASMS
     Dosage: 50 MG, 1X/DAY
     Route: 048
  9. CORTANCYL [Concomitant]
     Indication: CUTANEOUS LUPUS ERYTHEMATOSUS
     Dosage: UNK
     Route: 048
  10. NEXIUM [Concomitant]
     Indication: PROPHYLAXIS AGAINST GASTROINTESTINAL ULCER
     Dosage: 20 MG, 1X/DAY
     Route: 048

REACTIONS (3)
  - DRUG INTERACTION [None]
  - GINGIVAL BLEEDING [None]
  - OVERDOSE [None]
